FAERS Safety Report 11871033 (Version 1)
Quarter: 2015Q4

REPORT INFORMATION
  Report Type: Spontaneous
  Country: US (occurrence: None)
  Receive Date: 20151224
  Receipt Date: 20151224
  Transmission Date: 20160305
  Serious: Yes (Hospitalization)
  Sender: FDA-Public Use
  Company Number: None

PATIENT
  Age: 39 Year
  Sex: Female

DRUGS (13)
  1. LORATADINE. [Concomitant]
     Active Substance: LORATADINE
  2. METOPROLOL TARTRATE. [Concomitant]
     Active Substance: METOPROLOL TARTRATE
  3. NEPHROCAPS [Concomitant]
     Active Substance: ASCORBIC ACID\BIOTIN\CYANOCOBALAMIN\FOLIC ACID\NIACIN\PANTOTHENIC ACID\PYRIDOXINE\RIBOFLAVIN\THIAMINE
  4. SIMVASTATIN. [Concomitant]
     Active Substance: SIMVASTATIN
  5. OXYCODONE-ACETAMINOPHEN [Concomitant]
     Active Substance: ACETAMINOPHEN\OXYCODONE HYDROCHLORIDE
  6. SERTRALINE [Concomitant]
     Active Substance: SERTRALINE HYDROCHLORIDE
  7. OXYCODONE [Suspect]
     Active Substance: OXYCODONE
     Indication: PAIN
     Route: 048
     Dates: start: 20140914, end: 20150817
  8. ALBUTEROL. [Concomitant]
     Active Substance: ALBUTEROL
  9. ASPIRIN. [Concomitant]
     Active Substance: ASPIRIN
  10. DIPHENHYDRAMINE. [Concomitant]
     Active Substance: DIPHENHYDRAMINE
  11. SEVELAMER [Concomitant]
     Active Substance: SEVELAMER
  12. CINACALCET [Concomitant]
     Active Substance: CINACALCET
  13. TEMAZEPAM. [Concomitant]
     Active Substance: TEMAZEPAM

REACTIONS (7)
  - Lethargy [None]
  - Fall [None]
  - Drug dose omission [None]
  - Mental status changes [None]
  - Hyperkalaemia [None]
  - Somnolence [None]
  - Miosis [None]

NARRATIVE: CASE EVENT DATE: 20150817
